FAERS Safety Report 18092410 (Version 1)
Quarter: 2020Q3

REPORT INFORMATION
  Report Type: Spontaneous
  Country: ES (occurrence: ES)
  Receive Date: 20200730
  Receipt Date: 20200730
  Transmission Date: 20201103
  Serious: Yes (Other)
  Sender: FDA-Public Use
  Company Number: ES-GUERBET-ES-20200035

PATIENT
  Age: 42 Year
  Sex: Male

DRUGS (2)
  1. GADOTERIC ACID [Suspect]
     Active Substance: GADOTERATE MEGLUMINE
     Indication: MAGNETIC RESONANCE IMAGING
     Route: 065
  2. GADOBUTROL. [Suspect]
     Active Substance: GADOBUTROL
     Indication: MAGNETIC RESONANCE IMAGING
     Route: 065

REACTIONS (3)
  - Skin test positive [Unknown]
  - Contrast media allergy [Unknown]
  - Rash macular [Recovered/Resolved]
